FAERS Safety Report 7561424-7 (Version None)
Quarter: 2011Q2

REPORT INFORMATION
  Report Type: 
  Country: None (occurrence: None)
  Receive Date: 20110621
  Receipt Date: 20101012
  Transmission Date: 20111010
  Serious: No
  Sender: FDA-Public Use
  Company Number: US-ASTRAZENECA-2008UW24838

PATIENT
  Age: 67 Year
  Sex: Female
  Weight: 59 kg

DRUGS (8)
  1. PULMICORT FLEXHALER [Suspect]
     Dosage: 180 MCG QD
     Route: 055
  2. XOPONEX [Concomitant]
  3. NASONEX [Concomitant]
  4. PREVACID [Concomitant]
  5. PULMICORT FLEXHALER [Suspect]
     Indication: ASTHMA
     Dosage: 180 MCG
     Route: 055
  6. DARVOCET [Concomitant]
  7. EXOPINEX [Concomitant]
  8. PREDNISONE TAB [Concomitant]

REACTIONS (7)
  - ASTHMA [None]
  - BRONCHITIS [None]
  - MIDDLE INSOMNIA [None]
  - DRUG INEFFECTIVE [None]
  - JAUNDICE [None]
  - INITIAL INSOMNIA [None]
  - COUGH [None]
